FAERS Safety Report 6927623-X (Version None)
Quarter: 2010Q3

REPORT INFORMATION
  Report Type: 
  Country: None (occurrence: None)
  Receive Date: 20100817
  Receipt Date: 20100802
  Transmission Date: 20110219
  Serious: Yes (Hospitalization)
  Sender: FDA-Public Use
  Company Number: PHHY2010US50770

PATIENT
  Sex: Female

DRUGS (1)
  1. FEMARA [Suspect]
     Dosage: 2.5 MG
     Route: 048
     Dates: start: 20100316

REACTIONS (2)
  - CATHETERISATION CARDIAC [None]
  - DIABETES MELLITUS [None]
